FAERS Safety Report 8442701-4 (Version None)
Quarter: 2012Q2

REPORT INFORMATION
  Report Type: 
  Country: None (occurrence: None)
  Receive Date: 20120323
  Receipt Date: 20111219
  Transmission Date: 20120825
  Serious: Yes (Disabling)
  Sender: FDA-Public Use
  Company Number: 163-21880-11062106

PATIENT
  Age: 76 Year
  Sex: Male

DRUGS (5)
  1. LASIX [Concomitant]
  2. REVLIMID [Suspect]
     Indication: MULTIPLE MYELOMA
     Dosage: 25 MG, 1 IN 1 D, PO; 15 MG, 1 IN 1 D, PO; 10 MG, DAILY FOR 21 DAYS, PO; 5 MG, PO
     Route: 048
     Dates: start: 20090401
  3. REVLIMID [Suspect]
     Indication: MULTIPLE MYELOMA
     Dosage: 25 MG, 1 IN 1 D, PO; 15 MG, 1 IN 1 D, PO; 10 MG, DAILY FOR 21 DAYS, PO; 5 MG, PO
     Route: 048
     Dates: start: 20100501
  4. REVLIMID [Suspect]
     Indication: MULTIPLE MYELOMA
     Dosage: 25 MG, 1 IN 1 D, PO; 15 MG, 1 IN 1 D, PO; 10 MG, DAILY FOR 21 DAYS, PO; 5 MG, PO
     Route: 048
     Dates: start: 20081218, end: 20090101
  5. REVLIMID [Suspect]
     Indication: MULTIPLE MYELOMA
     Dosage: 25 MG, 1 IN 1 D, PO; 15 MG, 1 IN 1 D, PO; 10 MG, DAILY FOR 21 DAYS, PO; 5 MG, PO
     Route: 048
     Dates: start: 20110101, end: 20111111

REACTIONS (1)
  - WHITE BLOOD CELL COUNT DECREASED [None]
